FAERS Safety Report 8168273-X (Version None)
Quarter: 2012Q1

REPORT INFORMATION
  Report Type: 
  Country: None (occurrence: None)
  Receive Date: 20120222
  Receipt Date: 20120210
  Transmission Date: 20120608
  Serious: Yes (Hospitalization)
  Sender: FDA-Public Use
  Company Number: 975474

PATIENT
  Age: 62 Year
  Sex: Male
  Weight: 32.8858 kg

DRUGS (9)
  1. LISINOPRIL [Concomitant]
  2. FLUOROURACIL [Suspect]
     Indication: COLORECTAL CANCER METASTATIC
     Dosage: 750 MG MILLIGRAM(S), 4440 MG MILLIGRAM(S)
     Dates: start: 20110426, end: 20110607
  3. SIMVASTATIN [Concomitant]
  4. (MIXTARD /00806401/) [Concomitant]
  5. FERROUS SULFATE TAB [Concomitant]
  6. HUMALOG [Concomitant]
  7. IRINOTECAN HCL [Suspect]
     Indication: COLORECTAL CANCER METASTATIC
     Dosage: 330 MG MILLIGRAM(S)  INTRAVENOUS (NOT OTHERWISE SPECIFIED)
     Route: 042
     Dates: start: 20110426, end: 20110607
  8. (LANSOPRAZOLE) [Concomitant]
  9. (EYE DROPS) [Concomitant]

REACTIONS (1)
  - URINARY RETENTION [None]
